FAERS Safety Report 12260467 (Version 1)
Quarter: 2016Q2

REPORT INFORMATION
  Report Type: Spontaneous
  Country: ES (occurrence: ES)
  Receive Date: 20160412
  Receipt Date: 20160412
  Transmission Date: 20160815
  Serious: Yes (Other)
  Sender: FDA-Public Use
  Company Number: ES-ACTAVIS-2016-07761

PATIENT
  Age: 77 Year
  Sex: Male

DRUGS (2)
  1. DOCETAXEL (UNKNOWN) [Suspect]
     Active Substance: DOCETAXEL
     Dosage: UNK (0.1 AND 1MG/ML)
     Route: 023
  2. DOCETAXEL (UNKNOWN) [Suspect]
     Active Substance: DOCETAXEL
     Indication: PROSTATE CANCER
     Dosage: UNK UNK, CYCLICAL
     Route: 065
     Dates: start: 201108

REACTIONS (3)
  - Lichenoid keratosis [Unknown]
  - Palmar-plantar erythrodysaesthesia syndrome [Recovering/Resolving]
  - Fixed drug eruption [Unknown]
